FAERS Safety Report 4483890-6 (Version None)
Quarter: 2004Q4

REPORT INFORMATION
  Report Type: 
  Country: None (occurrence: None)
  Receive Date: 20041022
  Receipt Date: 20041022
  Transmission Date: 20050328
  Serious: Yes (Death)
  Sender: FDA-Public Use
  Company Number: None

PATIENT
  Age: 70 Year
  Sex: Male
  Weight: 79.8331 kg

DRUGS (12)
  1. CARBOPLATIN [Suspect]
     Indication: NON-SMALL CELL LUNG CANCER
     Dosage: 130 MG IV Q WK
     Route: 042
     Dates: start: 20040901
  2. TOPOTECAN [Suspect]
     Indication: NON-SMALL CELL LUNG CANCER
     Dosage: 6.0 MG IV Q WK
     Route: 042
     Dates: end: 20041013
  3. VERAPAMIL [Concomitant]
  4. LISINOPRIL [Concomitant]
  5. MUCINEX [Concomitant]
  6. IMIPRAM TAB [Concomitant]
  7. ALBUTEROL [Concomitant]
  8. ATROVENT [Concomitant]
  9. LEXAPRO [Concomitant]
  10. ANZEMET [Concomitant]
  11. DECADRON [Concomitant]
  12. BENADRYL [Concomitant]

REACTIONS (2)
  - CARDIAC ARREST [None]
  - COMA [None]
